FAERS Safety Report 15979050 (Version 1)
Quarter: 2019Q1

REPORT INFORMATION
  Report Type: Spontaneous
  Country: US (occurrence: US)
  Receive Date: 20190219
  Receipt Date: 20190219
  Transmission Date: 20190418
  Serious: No
  Sender: FDA-Public Use
  Company Number: US-JNJFOC-20190141450

PATIENT
  Sex: Male

DRUGS (6)
  1. IMODIUM A-D [Suspect]
     Active Substance: LOPERAMIDE HYDROCHLORIDE
     Indication: COLITIS ULCERATIVE
     Route: 048
  2. MULTI SYMPTOM RELIEF CAPLETS (LOPERAMIDE\SIMETHICONE) [Suspect]
     Active Substance: DIMETHICONE\LOPERAMIDE
     Route: 065
  3. IMODIUM [Suspect]
     Active Substance: LOPERAMIDE HYDROCHLORIDE
     Indication: COLITIS ULCERATIVE
     Route: 065
  4. IMODIUM A-D [Suspect]
     Active Substance: LOPERAMIDE HYDROCHLORIDE
     Route: 048
  5. IMODIUM [Suspect]
     Active Substance: LOPERAMIDE HYDROCHLORIDE
     Route: 065
  6. MULTI SYMPTOM RELIEF CAPLETS (LOPERAMIDE\SIMETHICONE) [Suspect]
     Active Substance: DIMETHICONE\LOPERAMIDE
     Indication: COLITIS ULCERATIVE
     Route: 065

REACTIONS (2)
  - Product use in unapproved indication [Unknown]
  - Off label use [Unknown]
